FAERS Safety Report 24342782 (Version 1)
Quarter: 2024Q3

REPORT INFORMATION
  Report Type: Spontaneous
  Country: CA (occurrence: CA)
  Receive Date: 20240920
  Receipt Date: 20240920
  Transmission Date: 20241017
  Serious: Yes (Life-Threatening, Other)
  Sender: CHEPLAPHARM
  Company Number: CA-CHEPLA-2024011904

PATIENT
  Age: 42 Year
  Sex: Male

DRUGS (1)
  1. CLONAZEPAM [Suspect]
     Active Substance: CLONAZEPAM
     Indication: Product used for unknown indication

REACTIONS (9)
  - Adverse event [Unknown]
  - Cognitive disorder [Unknown]
  - Drug dependence [Unknown]
  - Drug withdrawal syndrome [Unknown]
  - Memory impairment [Unknown]
  - Pain [Unknown]
  - Product dose omission issue [Unknown]
  - Product supply issue [Unknown]
  - Off label use [Unknown]
